FAERS Safety Report 9650070 (Version 1)
Quarter: 2013Q4

REPORT INFORMATION
  Report Type: Spontaneous
  Country: US (occurrence: US)
  Receive Date: 20131028
  Receipt Date: 20131028
  Transmission Date: 20140711
  Serious: No
  Sender: FDA-Public Use
  Company Number: US-PURDUE-USA-2012-0096508

PATIENT
  Age: 43 Year
  Sex: Female

DRUGS (2)
  1. OXYCONTIN (NDA 22-272) [Suspect]
     Indication: ARTHRALGIA
     Dosage: 40 MG, BID
     Route: 048
  2. REMICADE [Concomitant]
     Indication: ARTHRITIS
     Dosage: UNK
     Route: 042
     Dates: start: 2001

REACTIONS (5)
  - Underdose [Unknown]
  - Pain [Unknown]
  - Drug effect decreased [Not Recovered/Not Resolved]
  - Nausea [Not Recovered/Not Resolved]
  - Dizziness [Not Recovered/Not Resolved]
